FAERS Safety Report 4306893-0 (Version None)
Quarter: 2004Q1

REPORT INFORMATION
  Report Type: 
  Country: None (occurrence: None)
  Receive Date: 20040227
  Receipt Date: 20040217
  Transmission Date: 20041129
  Serious: Yes (Other)
  Sender: FDA-Public Use
  Company Number: GB-GLAXOSMITHKLINE-B0323864A

PATIENT
  Age: 50 Year
  Sex: Male

DRUGS (12)
  1. AVANDAMET [Suspect]
     Indication: DIABETES MELLITUS
     Route: 048
     Dates: start: 20040101
  2. METFORMIN HCL [Concomitant]
     Indication: DIABETES MELLITUS
     Dosage: 500MG PER DAY
     Route: 048
     Dates: end: 20041001
  3. SIMVASTATIN [Concomitant]
     Dosage: 40MG PER DAY
     Route: 048
  4. BEZAFIBRATE [Concomitant]
     Dosage: 400MG PER DAY
     Route: 048
  5. VALSARTAN [Concomitant]
     Indication: HYPERTENSION
     Dosage: 160MG PER DAY
     Route: 048
  6. ATENOLOL [Concomitant]
     Indication: HYPERTENSION
     Dosage: 12.5MG PER DAY
     Route: 048
  7. ASPIRIN [Concomitant]
     Dosage: 75MG PER DAY
     Route: 065
  8. DOTHIEPIN HYDROCHLORIDE [Concomitant]
     Dosage: 75MG PER DAY
     Route: 065
  9. ZOPICLONE [Concomitant]
     Route: 048
  10. ESOMEPRAZOLE [Concomitant]
     Indication: GASTRITIS
     Dosage: 40MG PER DAY
     Route: 048
  11. OMACOR [Concomitant]
     Dosage: 200MG PER DAY
     Route: 048
  12. VENTOLIN [Concomitant]
     Indication: ASTHMA

REACTIONS (1)
  - ASTHMA [None]
